FAERS Safety Report 6178908-9 (Version None)
Quarter: 2009Q2

REPORT INFORMATION
  Report Type: 
  Country: None (occurrence: None)
  Receive Date: 20090505
  Receipt Date: 20090422
  Transmission Date: 20091009
  Serious: Yes (Hospitalization)
  Sender: FDA-Public Use
  Company Number: JP-PFIZER INC-2009192420

PATIENT

DRUGS (9)
  1. ZOLOFT [Suspect]
     Indication: DEPRESSION
     Dosage: 75 MG
     Route: 048
     Dates: start: 20090319, end: 20090321
  2. TETRAMIDE [Suspect]
     Indication: DEPRESSION
     Route: 048
     Dates: start: 20090319, end: 20090321
  3. RISPERIDONE [Suspect]
     Indication: DEPRESSION
     Dosage: FREQUENCY: 3X/DAY,
     Route: 048
     Dates: start: 20090315, end: 20090321
  4. RISPERIDONE [Suspect]
     Indication: INSOMNIA
  5. PHENOBARBITAL TAB [Suspect]
     Indication: DEPRESSION
     Dosage: 120 MG, 1X/DAY
     Dates: start: 20090419, end: 20090421
  6. PHENOBARBITAL TAB [Suspect]
     Indication: INSOMNIA
  7. TEGRETOL [Concomitant]
     Dosage: UNK
     Route: 048
     Dates: start: 20090312, end: 20090320
  8. HALCION [Concomitant]
     Route: 048
     Dates: start: 20090315, end: 20090318
  9. SILECE [Concomitant]
     Route: 048
     Dates: start: 20090315, end: 20090318

REACTIONS (4)
  - BLOOD CREATINE PHOSPHOKINASE INCREASED [None]
  - DIARRHOEA [None]
  - NEUROLEPTIC MALIGNANT SYNDROME [None]
  - PYREXIA [None]
